FAERS Safety Report 14757456 (Version 1)
Quarter: 2018Q2

REPORT INFORMATION
  Report Type: Spontaneous
  Country: US (occurrence: US)
  Receive Date: 20180413
  Receipt Date: 20180413
  Transmission Date: 20180711
  Serious: No
  Sender: FDA-Public Use
  Company Number: US-TRIS PHARMA, INC-2018TRISPO00225

PATIENT

DRUGS (2)
  1. DYANAVEL XR [Suspect]
     Active Substance: AMPHETAMINE
     Indication: ATTENTION DEFICIT/HYPERACTIVITY DISORDER
     Dosage: 2.5 ML, QD
     Route: 048
     Dates: start: 20180202, end: 20180212
  2. DYANAVEL XR [Suspect]
     Active Substance: AMPHETAMINE
     Dosage: 3 ML, QD
     Route: 048
     Dates: start: 20180213, end: 20180213

REACTIONS (2)
  - Wheezing [Unknown]
  - Drug ineffective [Unknown]

NARRATIVE: CASE EVENT DATE: 20180213
